FAERS Safety Report 9702826 (Version 2)
Quarter: 2013Q4

REPORT INFORMATION
  Report Type: Report from Study
  Country: IE (occurrence: IE)
  Receive Date: 20131121
  Receipt Date: 20131203
  Transmission Date: 20140711
  Serious: Yes (Hospitalization)
  Sender: FDA-Public Use
  Company Number: IE-GLAXOSMITHKLINE-B0946548A

PATIENT
  Sex: Female

DRUGS (6)
  1. TYVERB [Suspect]
     Indication: BREAST CANCER
     Dosage: 1250MG PER DAY
     Route: 048
     Dates: start: 20130627
  2. XELODA [Concomitant]
     Dosage: 3500MG PER DAY
     Route: 048
  3. ZOTON [Concomitant]
  4. STEMETIL [Concomitant]
  5. VALOID [Concomitant]
  6. MORPHINE (MST) [Concomitant]

REACTIONS (2)
  - Ascites [Unknown]
  - Lung disorder [Unknown]
